FAERS Safety Report 10558772 (Version 3)
Quarter: 2015Q2

REPORT INFORMATION
  Report Type: Report from Study
  Country: US (occurrence: US)
  Receive Date: 20141031
  Receipt Date: 20150416
  Transmission Date: 20150821
  Serious: Yes (Hospitalization)
  Sender: FDA-Public Use
  Company Number: US-GILEAD-2014-0117282

PATIENT
  Age: 56 Year
  Sex: Female

DRUGS (4)
  1. AMBRISENTAN [Suspect]
     Active Substance: AMBRISENTAN
     Indication: PULMONARY ARTERIAL HYPERTENSION
     Dosage: 5 MG, QD
     Route: 065
     Dates: start: 20121026
  2. SILDENAFIL. [Concomitant]
     Active Substance: SILDENAFIL
  3. REVATIO [Concomitant]
     Active Substance: SILDENAFIL CITRATE
  4. XARELTO [Concomitant]
     Active Substance: RIVAROXABAN

REACTIONS (1)
  - Heart rate decreased [Unknown]
